FAERS Safety Report 12934071 (Version 2)
Quarter: 2016Q4

REPORT INFORMATION
  Report Type: Spontaneous
  Country: GB (occurrence: GB)
  Receive Date: 20161111
  Receipt Date: 20161129
  Transmission Date: 20170207
  Serious: Yes (Hospitalization, Other)
  Sender: FDA-Public Use
  Company Number: GB-PFIZER INC-2016515644

PATIENT
  Age: 80 Year
  Sex: Female

DRUGS (14)
  1. PIVMECILLINAM [Concomitant]
     Active Substance: PENICILLIN
     Dosage: UNK
  2. OMEPRAZOLE. [Concomitant]
     Active Substance: OMEPRAZOLE
     Dosage: UNK
  3. DOCUSATE [Concomitant]
     Active Substance: DOCUSATE
     Dosage: UNK
  4. LACTULOSE. [Concomitant]
     Active Substance: LACTULOSE
     Dosage: UNK
  5. LERCANIDIPINE [Concomitant]
     Active Substance: LERCANIDIPINE
     Dosage: UNK
  6. PARACETAMOL [Concomitant]
     Active Substance: ACETAMINOPHEN
     Dosage: UNK
  7. TROSPIUM CHLORIDE. [Concomitant]
     Active Substance: TROSPIUM CHLORIDE
     Dosage: UNK
  8. RIVAROXABAN [Concomitant]
     Active Substance: RIVAROXABAN
     Dosage: UNK
  9. EPILIM [Concomitant]
     Active Substance: VALPROATE SODIUM
     Dosage: UNK
  10. CLINDAMYCIN HCL [Suspect]
     Active Substance: CLINDAMYCIN HYDROCHLORIDE
     Indication: WOUND INFECTION
     Dosage: 450 MG, 4X/DAY
     Route: 048
     Dates: start: 20161017, end: 20161019
  11. TEICOPLANIN [Concomitant]
     Active Substance: TEICOPLANIN
     Dosage: UNK
  12. DOSULEPIN HYDROCHLORIDE [Concomitant]
     Active Substance: DOTHIEPIN HYDROCHLORIDE
     Dosage: UNK
  13. RAMIPRIL. [Concomitant]
     Active Substance: RAMIPRIL
     Dosage: UNK
  14. ZOPICLONE [Concomitant]
     Active Substance: ZOPICLONE
     Dosage: UNK

REACTIONS (2)
  - Swollen tongue [Recovered/Resolved]
  - Dyspnoea [Recovered/Resolved]

NARRATIVE: CASE EVENT DATE: 20161019
